FAERS Safety Report 5171940-3 (Version None)
Quarter: 2006Q4

REPORT INFORMATION
  Report Type: 
  Country: None (occurrence: None)
  Receive Date: 20061205
  Receipt Date: 20061124
  Transmission Date: 20070319
  Serious: Yes (Other)
  Sender: FDA-Public Use
  Company Number: 2006144459

PATIENT
  Age: 68 Year
  Sex: Male
  Weight: 95.2554 kg

DRUGS (3)
  1. BENGAY ULTRA STRENGTH PATCH (MENTHOL) [Suspect]
     Indication: TENDONITIS
     Dosage: 1 PATCH ONCE, TOPICAL
     Route: 061
     Dates: start: 20061122, end: 20061123
  2. ACETYLSALICYLIC ACID SRT [Concomitant]
  3. LOVASTATIN [Concomitant]

REACTIONS (1)
  - ANAPHYLACTIC SHOCK [None]
